FAERS Safety Report 22789610 (Version 4)
Quarter: 2023Q4

REPORT INFORMATION
  Report Type: Spontaneous
  Country: PT (occurrence: PT)
  Receive Date: 20230804
  Receipt Date: 20231002
  Transmission Date: 20240109
  Serious: Yes (Death, Life-Threatening, Hospitalization, Other)
  Sender: FDA-Public Use
  Company Number: PT-PFIZER INC-202300250279

PATIENT
  Age: 66 Year
  Sex: Male

DRUGS (10)
  1. VORICONAZOLE [Suspect]
     Active Substance: VORICONAZOLE
     Indication: Product used for unknown indication
     Dosage: UNK
     Route: 065
  2. PIPERACILLIN SODIUM\TAZOBACTAM SODIUM [Suspect]
     Active Substance: PIPERACILLIN SODIUM\TAZOBACTAM SODIUM
     Indication: Product used for unknown indication
     Dosage: UNK
     Route: 065
  3. MYCOPHENOLIC ACID [Suspect]
     Active Substance: MYCOPHENOLIC ACID
     Indication: Immunosuppressant drug therapy
     Dosage: UNK
     Route: 065
     Dates: start: 2016
  4. MYCOPHENOLIC ACID [Suspect]
     Active Substance: MYCOPHENOLIC ACID
     Indication: Squamous cell carcinoma of skin
  5. GANCICLOVIR [Suspect]
     Active Substance: GANCICLOVIR
     Indication: Product used for unknown indication
     Dosage: UNK
     Route: 065
  6. TACROLIMUS [Suspect]
     Active Substance: TACROLIMUS
     Indication: Immunosuppressant drug therapy
     Dosage: UNK
     Route: 065
     Dates: start: 2016
  7. TACROLIMUS [Suspect]
     Active Substance: TACROLIMUS
     Indication: Squamous cell carcinoma of skin
  8. PREDNISOLONE [Suspect]
     Active Substance: PREDNISOLONE
     Indication: Immunosuppressant drug therapy
     Dosage: LONG-TERM TREATMENT
     Route: 065
     Dates: start: 2016
  9. PREDNISOLONE [Suspect]
     Active Substance: PREDNISOLONE
     Indication: Squamous cell carcinoma of skin
  10. OSELTAMIVIR [Suspect]
     Active Substance: OSELTAMIVIR
     Indication: Product used for unknown indication
     Dosage: UNK
     Route: 065

REACTIONS (8)
  - Septic shock [Fatal]
  - Multiple organ dysfunction syndrome [Fatal]
  - Klebsiella infection [Fatal]
  - Bronchopulmonary aspergillosis [Fatal]
  - Pneumonia viral [Fatal]
  - Drug ineffective [Fatal]
  - Infection in an immunocompromised host [Fatal]
  - Superinfection bacterial [Fatal]
